FAERS Safety Report 8445432-X (Version None)
Quarter: 2012Q2

REPORT INFORMATION
  Report Type: 
  Country: None (occurrence: None)
  Receive Date: 20120618
  Receipt Date: 20120405
  Transmission Date: 20120825
  Serious: Yes (Death)
  Sender: FDA-Public Use
  Company Number: US-TEVA-332064USA

PATIENT
  Sex: Male

DRUGS (2)
  1. HYDROMORPHONE HYDROCHLORIDE [Concomitant]
     Route: 042
  2. FENTORA [Suspect]
     Indication: OSTEOSARCOMA METASTATIC
     Route: 002

REACTIONS (1)
  - DEATH [None]
